FAERS Safety Report 18895562 (Version 2)
Quarter: 2021Q1

REPORT INFORMATION
  Report Type: Report from Study
  Country: None (occurrence: US)
  Receive Date: 20210216
  Receipt Date: 20210312
  Transmission Date: 20210420
  Serious: Yes (Hospitalization, Other)
  Sender: FDA-Public Use
  Company Number: US-ABBVIE-21K-163-3758861-00

PATIENT
  Age: 66 Year
  Sex: Male

DRUGS (11)
  1. PRAMIPEXOLE. [Concomitant]
     Active Substance: PRAMIPEXOLE
     Indication: PRODUCT USED FOR UNKNOWN INDICATION
  2. TRIAMCINOLONE [Concomitant]
     Active Substance: TRIAMCINOLONE
     Indication: PRODUCT USED FOR UNKNOWN INDICATION
  3. TAMSULOSIN [Concomitant]
     Active Substance: TAMSULOSIN
     Indication: PRODUCT USED FOR UNKNOWN INDICATION
  4. TRAZODONE [Concomitant]
     Active Substance: TRAZODONE HYDROCHLORIDE
     Indication: PRODUCT USED FOR UNKNOWN INDICATION
  5. FLUTICASONE. [Concomitant]
     Active Substance: FLUTICASONE
     Indication: PRODUCT USED FOR UNKNOWN INDICATION
  6. GABAPENTIN. [Concomitant]
     Active Substance: GABAPENTIN
     Indication: PRODUCT USED FOR UNKNOWN INDICATION
  7. VENCLEXTA [Suspect]
     Active Substance: VENETOCLAX
     Indication: 5Q MINUS SYNDROME
     Route: 048
     Dates: start: 20210201, end: 20210220
  8. OXYCODONE [Concomitant]
     Active Substance: OXYCODONE
     Indication: PRODUCT USED FOR UNKNOWN INDICATION
  9. ACYCLOVIR. [Concomitant]
     Active Substance: ACYCLOVIR
     Indication: MYELODYSPLASTIC SYNDROME
  10. NICOTINE. [Concomitant]
     Active Substance: NICOTINE
     Indication: PRODUCT USED FOR UNKNOWN INDICATION
  11. LIDODERM [Concomitant]
     Active Substance: LIDOCAINE
     Indication: PRODUCT USED FOR UNKNOWN INDICATION

REACTIONS (20)
  - Pyrexia [Unknown]
  - Haemoglobin decreased [Not Recovered/Not Resolved]
  - Limb injury [Not Recovered/Not Resolved]
  - Dyspnoea [Recovering/Resolving]
  - Dysuria [Not Recovered/Not Resolved]
  - Joint effusion [Unknown]
  - Peripheral swelling [Recovered/Resolved]
  - Arthralgia [Recovering/Resolving]
  - Decreased appetite [Unknown]
  - Off label use [Unknown]
  - Joint swelling [Recovering/Resolving]
  - Pain [Unknown]
  - Rotator cuff syndrome [Not Recovered/Not Resolved]
  - Arthritis infective [Unknown]
  - Nausea [Unknown]
  - Feeling abnormal [Unknown]
  - Urethritis [Not Recovered/Not Resolved]
  - White blood cell count decreased [Not Recovered/Not Resolved]
  - Peripheral swelling [Recovering/Resolving]
  - Genital swelling [Not Recovered/Not Resolved]

NARRATIVE: CASE EVENT DATE: 2021
